FAERS Safety Report 7821949-3 (Version None)
Quarter: 2011Q4

REPORT INFORMATION
  Report Type: 
  Country: None (occurrence: None)
  Receive Date: 20111018
  Receipt Date: 20110701
  Transmission Date: 20120403
  Serious: No
  Sender: FDA-Public Use
  Company Number: US-ASTRAZENECA-2011SE39684

PATIENT
  Age: 70 Year
  Sex: Female

DRUGS (4)
  1. SYMBICORT [Suspect]
     Indication: ASTHMA
     Dosage: 80/4.5 MCG 2 PUFFS DAILY
     Route: 055
     Dates: start: 20110701
  2. SINGULAIR [Concomitant]
  3. ALBUTEROL [Concomitant]
  4. ADVAIR DISKUS 100/50 [Concomitant]

REACTIONS (4)
  - DRY MOUTH [None]
  - DYSPNOEA [None]
  - TACHYCARDIA [None]
  - HEADACHE [None]
